FAERS Safety Report 8530370-4 (Version None)
Quarter: 2012Q3

REPORT INFORMATION
  Report Type: 
  Country: None (occurrence: None)
  Receive Date: 20120723
  Receipt Date: 20120719
  Transmission Date: 20120928
  Serious: Yes (Other)
  Sender: FDA-Public Use
  Company Number: US-FRI-1000037258

PATIENT
  Age: 70 Year
  Sex: Female

DRUGS (5)
  1. DILAUDID [Suspect]
  2. VIIBRYD [Suspect]
     Indication: DEPRESSION
     Dosage: 10 MG
     Route: 048
     Dates: start: 20120701, end: 20120701
  3. VIIBRYD [Suspect]
     Dosage: 40 MG
     Route: 048
     Dates: start: 20120717
  4. VIIBRYD [Suspect]
     Dosage: 20 MG
     Route: 048
     Dates: start: 20120701, end: 20120716
  5. IFOSFAMIDE [Suspect]
     Indication: CHEMOTHERAPY

REACTIONS (2)
  - CONFUSIONAL STATE [None]
  - INCOHERENT [None]
